FAERS Safety Report 23300867 (Version 1)
Quarter: 2023Q4

REPORT INFORMATION
  Report Type: Spontaneous
  Country: CN (occurrence: CN)
  Receive Date: 20231215
  Receipt Date: 20231215
  Transmission Date: 20240110
  Serious: Yes (Other)
  Sender: FDA-Public Use
  Company Number: CN-AUROBINDO-AUR-APL-2023-078418

PATIENT
  Age: 59 Year
  Sex: Male

DRUGS (1)
  1. PANTOPRAZOLE [Suspect]
     Active Substance: PANTOPRAZOLE
     Indication: Tuberculosis
     Dosage: 40 MILLIGRAM, DAILY
     Route: 065
     Dates: start: 20231023, end: 20231101

REACTIONS (2)
  - Hyperuricaemia [Recovering/Resolving]
  - Liver function test abnormal [Recovering/Resolving]

NARRATIVE: CASE EVENT DATE: 20231101
